FAERS Safety Report 9315334 (Version 2)
Quarter: 2013Q2

REPORT INFORMATION
  Report Type: Spontaneous
  Country: JP (occurrence: JP)
  Receive Date: 20130529
  Receipt Date: 20130610
  Transmission Date: 20140414
  Serious: Yes (Other)
  Sender: FDA-Public Use
  Company Number: JP-ABBOTT-13P-087-1094552-00

PATIENT
  Age: 61 Year
  Sex: Male

DRUGS (3)
  1. SEVOFLURANE [Suspect]
     Indication: GENERAL ANAESTHESIA
  2. FENTANYL [Suspect]
     Indication: ANAESTHESIA
  3. OXYGEN [Concomitant]

REACTIONS (1)
  - Prinzmetal angina [Recovered/Resolved]
